FAERS Safety Report 7522282-X (Version None)
Quarter: 2011Q2

REPORT INFORMATION
  Report Type: 
  Country: None (occurrence: None)
  Receive Date: 20110603
  Receipt Date: 20110601
  Transmission Date: 20111010
  Serious: Yes (Hospitalization)
  Sender: FDA-Public Use
  Company Number: CA-PFIZER INC-2010070078

PATIENT
  Age: 72 Year
  Sex: Female

DRUGS (6)
  1. ASPIRIN [Concomitant]
     Dosage: 81 MG, 1X/DAY
  2. OXYBUTYNIN [Concomitant]
     Dosage: 5 MG, 1X/DAY
  3. LIPITOR [Suspect]
     Dosage: 20 MG, 1X/DAY
     Route: 048
     Dates: start: 20080525, end: 20080613
  4. QUININE SULFATE [Interacting]
     Dosage: 200 MG, AS NEEDED AT BEDTIME
     Route: 048
     Dates: start: 20080410, end: 20080613
  5. LEVOTHYROXINE [Concomitant]
     Dosage: 112 UG, UNK
  6. RABEPRAZOLE [Concomitant]
     Dosage: 20 MG, 1X/DAY

REACTIONS (3)
  - DRUG INTERACTION [None]
  - PLATELET COUNT DECREASED [None]
  - EPISTAXIS [None]
